FAERS Safety Report 14576660 (Version 2)
Quarter: 2018Q3

REPORT INFORMATION
  Report Type: Spontaneous
  Country: US (occurrence: US)
  Receive Date: 20180227
  Receipt Date: 20180723
  Transmission Date: 20181010
  Serious: Yes (Hospitalization, Other)
  Sender: FDA-Public Use
  Company Number: US-JNJFOC-20180222199

PATIENT
  Age: 79 Year
  Sex: Female
  Weight: 51.03 kg

DRUGS (28)
  1. DEXAMETHASONE. [Suspect]
     Active Substance: DEXAMETHASONE
     Indication: PRODUCT USED FOR UNKNOWN INDICATION
     Dates: start: 20171030
  2. ESTRACE [Concomitant]
     Active Substance: ESTRADIOL
  3. NASONEX [Concomitant]
     Active Substance: MOMETASONE FUROATE
  4. DEXAMETHASONE. [Suspect]
     Active Substance: DEXAMETHASONE
     Indication: PRODUCT USED FOR UNKNOWN INDICATION
     Dates: end: 20171019
  5. PREDNISOLONE. [Concomitant]
     Active Substance: PREDNISOLONE
  6. SPORANOX [Concomitant]
     Active Substance: ITRACONAZOLE
  7. POMALIDOMIDE [Suspect]
     Active Substance: POMALIDOMIDE
     Indication: PLASMA CELL MYELOMA
     Dosage: 30?OCT?2017 START DATE
  8. ZANTAC [Concomitant]
     Active Substance: RANITIDINE HYDROCHLORIDE
  9. ACETAMINOPHEN. [Concomitant]
     Active Substance: ACETAMINOPHEN
  10. REVLIMID [Suspect]
     Active Substance: LENALIDOMIDE
     Indication: PLASMA CELL MYELOMA
     Dosage: DAYS 1, 8, AND 15 OF 28?DAY CYCLE
     Route: 065
  11. GABAPENTIN. [Concomitant]
     Active Substance: GABAPENTIN
  12. MIRALAX [Concomitant]
     Active Substance: POLYETHYLENE GLYCOL 3350
  13. ACYCLOVIR. [Concomitant]
     Active Substance: ACYCLOVIR
  14. DARZALEX [Suspect]
     Active Substance: DARATUMUMAB
     Indication: PLASMA CELL MYELOMA
     Dosage: 30?OCT?2017 START DATE
     Route: 042
     Dates: end: 20180522
  15. NINLARO [Suspect]
     Active Substance: IXAZOMIB CITRATE
     Indication: PLASMA CELL MYELOMA
     Dosage: 25?NOV?2015 START DATE
     Route: 048
  16. AZITHROMYCIN ANHYDROUS. [Concomitant]
     Active Substance: AZITHROMYCIN ANHYDROUS
  17. SULFAMETHOXAZOLE AND TRIMETHOPRIM [Concomitant]
     Active Substance: SULFAMETHOXAZOLE\TRIMETHOPRIM
  18. ALLOPURINOL. [Concomitant]
     Active Substance: ALLOPURINOL
  19. LEVAQUIN [Concomitant]
     Active Substance: LEVOFLOXACIN
  20. NINLARO [Suspect]
     Active Substance: IXAZOMIB CITRATE
     Indication: PLASMA CELL MYELOMA
     Dosage: ON D1,8,15 OF A 28 DAY CYCLE
     Route: 048
     Dates: start: 20170214, end: 20171019
  21. LORAZEPAN [Concomitant]
     Active Substance: LORAZEPAM
  22. RANITIDINE HCL [Concomitant]
     Active Substance: RANITIDINE HYDROCHLORIDE
  23. ZITHROMAX [Concomitant]
     Active Substance: AZITHROMYCIN DIHYDRATE
  24. ALBUTEROL SULFATE. [Concomitant]
     Active Substance: ALBUTEROL SULFATE
  25. REVLIMID [Suspect]
     Active Substance: LENALIDOMIDE
     Indication: PLASMA CELL MYELOMA
     Dosage: 14?FEB?2017
     Route: 065
     Dates: end: 20171019
  26. CENTRUM SILVER [Concomitant]
     Active Substance: MINERALS\VITAMINS
  27. COLACE [Concomitant]
     Active Substance: DOCUSATE SODIUM
  28. CEFPODOXIME PROXETIL. [Concomitant]
     Active Substance: CEFPODOXIME PROXETIL

REACTIONS (7)
  - Pneumonia [Recovered/Resolved]
  - Bronchitis [Recovered/Resolved]
  - Malaise [Unknown]
  - Ear infection [Recovered/Resolved]
  - Respiratory syncytial virus infection [Recovered/Resolved]
  - Plasma cell myeloma [Not Recovered/Not Resolved]
  - Wheezing [Unknown]

NARRATIVE: CASE EVENT DATE: 20170503
